FAERS Safety Report 5335271-0 (Version None)
Quarter: 2007Q2

REPORT INFORMATION
  Report Type: 
  Country: None (occurrence: None)
  Receive Date: 20070525
  Receipt Date: 20070516
  Transmission Date: 20071010
  Serious: Yes (Life-Threatening, Hospitalization, Other)
  Sender: FDA-Public Use
  Company Number: DK-PFIZER INC-2007025977

PATIENT
  Sex: Female
  Weight: 70 kg

DRUGS (3)
  1. LYRICA [Suspect]
     Indication: BACK PAIN
     Route: 048
     Dates: start: 20060925, end: 20060926
  2. DOLOL [Concomitant]
     Route: 048
     Dates: start: 20060914, end: 20060926
  3. IBUPROFEN [Concomitant]
     Route: 048
     Dates: start: 20060914, end: 20060926

REACTIONS (6)
  - ACUTE HEPATIC FAILURE [None]
  - COMA [None]
  - DIZZINESS [None]
  - HEPATIC ENZYME INCREASED [None]
  - LEUKOCYTOSIS [None]
  - VERTIGO [None]
